FAERS Safety Report 18178448 (Version 3)
Quarter: 2021Q1

REPORT INFORMATION
  Report Type: Spontaneous
  Country: US (occurrence: US)
  Receive Date: 20200820
  Receipt Date: 20210328
  Transmission Date: 20210419
  Serious: Yes (Death, Life-Threatening, Hospitalization, Disabling, Other)
  Sender: FDA-Public Use
  Company Number: US-TEVA-2020-US-1817291

PATIENT
  Age: 57 Year
  Sex: Female
  Weight: 122 kg

DRUGS (47)
  1. VANCOMYCIN [Concomitant]
     Active Substance: VANCOMYCIN
     Route: 065
     Dates: start: 20171114, end: 20171224
  2. COMPAZINE [Concomitant]
     Active Substance: PROCHLORPERAZINE MALEATE
     Route: 065
  3. NORVASC [Concomitant]
     Active Substance: AMLODIPINE BESYLATE
     Dates: start: 20171113, end: 20171209
  4. SUBLIMAZE [Concomitant]
     Active Substance: FENTANYL CITRATE
     Dates: start: 20171114
  5. SENOKOT [Concomitant]
     Active Substance: SENNOSIDES
     Dates: start: 20171112, end: 20180104
  6. ZYLOPRIM [Concomitant]
     Active Substance: ALLOPURINOL
     Dates: start: 20171122, end: 20171124
  7. LIDOCAINE. [Concomitant]
     Active Substance: LIDOCAINE
     Dates: start: 20171113, end: 20180104
  8. MELATONIN [Concomitant]
     Active Substance: MELATONIN
     Dates: start: 20171116, end: 20171217
  9. RENVELA [Concomitant]
     Active Substance: SEVELAMER CARBONATE
     Dates: start: 20171119, end: 20171125
  10. CAPHOSOL [Concomitant]
     Active Substance: CALCIUM CHLORIDE\SODIUM CHLORIDE\SODIUM PHOSPHATE, DIBASIC, ANHYDROUS\SODIUM PHOSPHATE, MONOBASIC, ANHYDROUS
     Route: 065
  11. MIDAZOLAM HYDROCHLORIDE. [Concomitant]
     Active Substance: MIDAZOLAM HYDROCHLORIDE
  12. NORMAL SALINE [Concomitant]
     Active Substance: SODIUM CHLORIDE
  13. MAGNESIUM SULFATE. [Concomitant]
     Active Substance: MAGNESIUM SULFATE
     Dates: start: 20171115, end: 20171207
  14. ASP2215 [Suspect]
     Active Substance: GILTERITINIB
     Indication: ACUTE MYELOID LEUKAEMIA
     Dosage: 200 MILLIGRAM DAILY;
     Route: 048
     Dates: start: 20171117, end: 20171203
  15. LASIX [Concomitant]
     Active Substance: FUROSEMIDE
     Route: 065
  16. LANTUS [Concomitant]
     Active Substance: INSULIN GLARGINE
     Route: 065
  17. VERSED [Concomitant]
     Active Substance: MIDAZOLAM HYDROCHLORIDE
     Dates: start: 20171114
  18. HYDREA [Concomitant]
     Active Substance: HYDROXYUREA
     Dates: start: 20171112, end: 20171117
  19. IDARUBICIN [Suspect]
     Active Substance: IDARUBICIN
     Indication: ACUTE MYELOID LEUKAEMIA
     Dosage: 29 MILLIGRAM DAILY;
     Route: 042
     Dates: start: 20171117, end: 20171119
  20. CYTARABINE. [Suspect]
     Active Substance: CYTARABINE
     Indication: ACUTE MYELOID LEUKAEMIA
     Dosage: 240 MILLIGRAM DAILY;
     Route: 042
     Dates: start: 20171117, end: 20171123
  21. ZOSYN [Concomitant]
     Active Substance: PIPERACILLIN SODIUM\TAZOBACTAM SODIUM
     Route: 065
     Dates: start: 20171122
  22. AVELOX [Concomitant]
     Active Substance: MOXIFLOXACIN HYDROCHLORIDE
     Route: 065
  23. ZOFRAN [Concomitant]
     Active Substance: ONDANSETRON HYDROCHLORIDE
     Route: 065
  24. FENTANYL. [Concomitant]
     Active Substance: FENTANYL
  25. ALLOPURINOL. [Concomitant]
     Active Substance: ALLOPURINOL
  26. XYLOCAINE [Concomitant]
     Active Substance: LIDOCAINE HYDROCHLORIDE
     Dates: start: 20171113, end: 20171113
  27. CIPRO [Concomitant]
     Active Substance: CIPROFLOXACIN HYDROCHLORIDE
     Dates: start: 20171114, end: 20171122
  28. K?DUR [Concomitant]
     Active Substance: POTASSIUM CHLORIDE
     Dates: start: 20171115, end: 20171118
  29. HUMALOG [Concomitant]
     Active Substance: INSULIN LISPRO
     Dates: start: 20171116, end: 20171209
  30. AMLODIPINE [Concomitant]
     Active Substance: AMLODIPINE BESYLATE
     Route: 065
  31. SODIUM CHLORIDE. [Concomitant]
     Active Substance: SODIUM CHLORIDE
     Dates: start: 20171112, end: 20180104
  32. POTASSIUM CHLORIDE. [Concomitant]
     Active Substance: POTASSIUM CHLORIDE
     Dates: start: 20171113, end: 20171207
  33. ELITEK [Concomitant]
     Active Substance: RASBURICASE
     Route: 065
  34. NEOSYNEPHRINE [Concomitant]
     Active Substance: PHENYLEPHRINE HYDROCHLORIDE
     Dates: start: 20171113, end: 20171113
  35. PHENOL. [Concomitant]
     Active Substance: PHENOL
     Dates: start: 20171113, end: 20180104
  36. DEXTROSE. [Concomitant]
     Active Substance: DEXTROSE
     Dates: start: 20171115, end: 20171208
  37. EMEND [Concomitant]
     Active Substance: APREPITANT
     Dates: start: 20171117, end: 20171120
  38. DIFLUCAN [Concomitant]
     Active Substance: FLUCONAZOLE
     Dates: start: 20171120, end: 20171214
  39. COLACE [Concomitant]
     Active Substance: DOCUSATE SODIUM
     Route: 065
     Dates: start: 20171112, end: 20171127
  40. TYLENOL [Concomitant]
     Active Substance: ACETAMINOPHEN
     Route: 065
  41. ELAVIL [Concomitant]
     Active Substance: AMITRIPTYLINE HYDROCHLORIDE
     Dates: start: 20171113, end: 20171113
  42. K?LYTE [Concomitant]
     Dates: start: 20171114, end: 20171126
  43. GLUCOSE [Concomitant]
     Active Substance: DEXTROSE
     Dates: start: 20171115, end: 20171208
  44. ZOVIRAX [Concomitant]
     Active Substance: ACYCLOVIR
     Route: 065
     Dates: start: 20171119, end: 20180104
  45. NYSTATIN. [Concomitant]
     Active Substance: NYSTATIN
     Route: 065
  46. ATIVAN [Concomitant]
     Active Substance: LORAZEPAM
     Route: 065
  47. SENNOSIDE A+B [Concomitant]
     Active Substance: SENNOSIDES A AND B

REACTIONS (5)
  - Fungaemia [Recovered/Resolved]
  - Acute kidney injury [Recovered/Resolved]
  - Neutropenic colitis [Fatal]
  - Febrile neutropenia [Recovered/Resolved]
  - Respiratory failure [Recovered/Resolved]

NARRATIVE: CASE EVENT DATE: 20171122
